FAERS Safety Report 14094859 (Version 1)
Quarter: 2017Q4

REPORT INFORMATION
  Report Type: Report from Study
  Country: US (occurrence: US)
  Receive Date: 20171016
  Receipt Date: 20171016
  Transmission Date: 20180321
  Serious: Yes (Hospitalization)
  Sender: FDA-Public Use
  Company Number: US-JNJFOC-20170214126

PATIENT
  Sex: Male

DRUGS (18)
  1. SUCRALFATE. [Concomitant]
     Active Substance: SUCRALFATE
  2. TYLENOL [Concomitant]
     Active Substance: ACETAMINOPHEN
  3. IMBRUVICA [Suspect]
     Active Substance: IBRUTINIB
     Indication: WALDENSTROM^S MACROGLOBULINAEMIA
     Route: 048
     Dates: start: 20150512
  4. LISINOPRIL. [Concomitant]
     Active Substance: LISINOPRIL
  5. MAGNESIUM [Concomitant]
     Active Substance: MAGNESIUM
  6. BENZONATATE. [Concomitant]
     Active Substance: BENZONATATE
  7. PROTONIS [Concomitant]
  8. TOBRAMYCIN. [Concomitant]
     Active Substance: TOBRAMYCIN
  9. IMBRUVICA [Suspect]
     Active Substance: IBRUTINIB
     Indication: WALDENSTROM^S MACROGLOBULINAEMIA
     Route: 048
     Dates: start: 20150514
  10. IMBRUVICA [Suspect]
     Active Substance: IBRUTINIB
     Indication: WALDENSTROM^S MACROGLOBULINAEMIA
     Route: 048
     Dates: start: 20160414
  11. TOPROL XL [Concomitant]
     Active Substance: METOPROLOL SUCCINATE
  12. WARFARIN [Concomitant]
     Active Substance: WARFARIN
  13. SYNTHROID [Concomitant]
     Active Substance: LEVOTHYROXINE SODIUM
  14. FLUOCINOLONE [Concomitant]
     Active Substance: FLUOCINOLONE
  15. PREDNISONE. [Concomitant]
     Active Substance: PREDNISONE
  16. ZITHROMAX [Concomitant]
     Active Substance: AZITHROMYCIN DIHYDRATE
  17. ATORVASTATIN [Concomitant]
     Active Substance: ATORVASTATIN
  18. PANTOPRAZOLE SODIUM. [Concomitant]
     Active Substance: PANTOPRAZOLE SODIUM

REACTIONS (7)
  - Fluid retention [Not Recovered/Not Resolved]
  - Nausea [Unknown]
  - Blister [Unknown]
  - Arthralgia [Unknown]
  - Abdominal pain upper [Not Recovered/Not Resolved]
  - Dyspnoea [Unknown]
  - Myalgia [Unknown]
